FAERS Safety Report 5895603-1 (Version None)
Quarter: 2008Q3

REPORT INFORMATION
  Report Type: 
  Country: None (occurrence: None)
  Receive Date: 20080924
  Receipt Date: 20080115
  Transmission Date: 20090109
  Serious: Yes (Other)
  Sender: FDA-Public Use
  Company Number: US-ASTRAZENECA-2006UW10852

PATIENT
  Age: 43 Year
  Sex: Female
  Weight: 93.9 kg

DRUGS (28)
  1. SEROQUEL [Suspect]
     Indication: MENTAL DISORDER
     Route: 048
     Dates: start: 20010401, end: 20051031
  2. SEROQUEL [Suspect]
     Indication: HALLUCINATION
     Route: 048
     Dates: start: 20010401, end: 20051031
  3. SEROQUEL [Suspect]
     Route: 048
  4. SEROQUEL [Suspect]
     Route: 048
  5. ZYPREXA [Suspect]
  6. GEODON [Concomitant]
  7. HALDOL [Concomitant]
  8. RISPERDAL [Concomitant]
  9. THORAZINE [Concomitant]
  10. ATIVAN [Concomitant]
  11. ELAVIL [Concomitant]
  12. BENADRYL [Concomitant]
  13. RESTORIL [Concomitant]
  14. SERAX [Concomitant]
  15. PROZAC [Concomitant]
  16. SYMMETREL [Concomitant]
  17. TRILAFON [Concomitant]
  18. ZANTAC [Concomitant]
  19. MOTRIN [Concomitant]
  20. HYDROCODEINE [Concomitant]
  21. VENTOLIN [Concomitant]
  22. KLONOPIN [Concomitant]
  23. EFFEXOR [Concomitant]
  24. DALMANE [Concomitant]
  25. PRILOSEC [Concomitant]
  26. NAPROXEN [Concomitant]
  27. PROTONIX [Concomitant]
  28. HALDOL [Concomitant]

REACTIONS (2)
  - DIABETES MELLITUS [None]
  - PANCREATITIS [None]
